FAERS Safety Report 21884484 (Version 7)
Quarter: 2023Q2

REPORT INFORMATION
  Report Type: Spontaneous
  Country: US (occurrence: US)
  Receive Date: 20230119
  Receipt Date: 20230413
  Transmission Date: 20230722
  Serious: Yes (Other)
  Sender: FDA-Public Use
  Company Number: US-PFIZER INC-PV202300010940

PATIENT
  Age: 57 Year
  Sex: Female
  Weight: 57.596 kg

DRUGS (2)
  1. IBRANCE [Suspect]
     Active Substance: PALBOCICLIB
     Indication: Breast cancer female
     Dosage: 125 MG, DAILY
     Route: 048
     Dates: start: 20230106, end: 202303
  2. LETROZOLE [Concomitant]
     Active Substance: LETROZOLE
     Indication: Breast cancer female
     Dosage: UNK
     Dates: start: 20230106

REACTIONS (12)
  - Cough [Not Recovered/Not Resolved]
  - Inflammation [Unknown]
  - Decreased appetite [Not Recovered/Not Resolved]
  - Fatigue [Not Recovered/Not Resolved]
  - Epistaxis [Recovering/Resolving]
  - Weight decreased [Not Recovered/Not Resolved]
  - Nasal congestion [Unknown]
  - Secretion discharge [Unknown]
  - Conjunctivitis [Unknown]
  - White blood cell count decreased [Unknown]
  - Insomnia [Unknown]
  - Neoplasm progression [Unknown]

NARRATIVE: CASE EVENT DATE: 20230101
